FAERS Safety Report 10185575 (Version 2)
Quarter: 2014Q2

REPORT INFORMATION
  Report Type: Spontaneous
  Country: US (occurrence: US)
  Receive Date: 20140521
  Receipt Date: 20140521
  Transmission Date: 20141212
  Serious: No
  Sender: FDA-Public Use
  Company Number: US-BAXTER-2014BAX023551

PATIENT
  Age: 35 Year
  Sex: Male

DRUGS (3)
  1. DIANEAL LOW CALCIUM [Suspect]
     Indication: PERITONEAL DIALYSIS
     Route: 033
     Dates: start: 20140402, end: 20140512
  2. DIANEAL LOW CALCIUM [Suspect]
     Route: 033
     Dates: start: 20140514
  3. RENAGEL [Concomitant]
     Indication: BLOOD PHOSPHORUS INCREASED
     Route: 048

REACTIONS (3)
  - Testicular pain [Recovering/Resolving]
  - Blood phosphorus increased [Unknown]
  - Procedural pain [Recovering/Resolving]
